FAERS Safety Report 14605277 (Version 1)
Quarter: 2018Q1

REPORT INFORMATION
  Report Type: Spontaneous
  Country: US (occurrence: US)
  Receive Date: 20180306
  Receipt Date: 20180306
  Transmission Date: 20180509
  Serious: No
  Sender: FDA-Public Use
  Company Number: US-TARO-2017TAR00043

PATIENT
  Age: 77 Year
  Sex: Female
  Weight: 68.27 kg

DRUGS (4)
  1. AMIODARONE [Concomitant]
     Active Substance: AMIODARONE
  2. SYNTHROID [Concomitant]
     Active Substance: LEVOTHYROXINE SODIUM
  3. TERCONAZOLE VAGINAL CREAM 0.4% [Suspect]
     Active Substance: TERCONAZOLE
     Indication: VULVOVAGINAL PRURITUS
     Dosage: UNK UNK, ONCE
     Route: 067
     Dates: start: 201701, end: 201701
  4. METOPROLOL. [Concomitant]
     Active Substance: METOPROLOL

REACTIONS (2)
  - Vulvovaginal pain [Recovered/Resolved]
  - Vaginal laceration [Recovered/Resolved]

NARRATIVE: CASE EVENT DATE: 201701
